FAERS Safety Report 4305068-9 (Version None)
Quarter: 2004Q1

REPORT INFORMATION
  Report Type: 
  Country: None (occurrence: None)
  Receive Date: 20040226
  Receipt Date: 20031125
  Transmission Date: 20041129
  Serious: Yes (Hospitalization)
  Sender: FDA-Public Use
  Company Number: US-GLAXOSMITHKLINE-A0441145A

PATIENT
  Age: 75 Year
  Sex: Female
  Weight: 91.8 kg

DRUGS (1)
  1. LAMOTRIGINE [Suspect]
     Indication: DIABETIC NEUROPATHY
     Route: 048
     Dates: start: 20031007, end: 20031116

REACTIONS (8)
  - ATAXIA [None]
  - CHEST PAIN [None]
  - CONFUSIONAL STATE [None]
  - DIZZINESS [None]
  - FALL [None]
  - MENTAL STATUS CHANGES [None]
  - NAUSEA [None]
  - VOMITING [None]
